FAERS Safety Report 5161986-3 (Version None)
Quarter: 2006Q4

REPORT INFORMATION
  Report Type: 
  Country: None (occurrence: None)
  Receive Date: 20061130
  Receipt Date: 20061113
  Transmission Date: 20070319
  Serious: Yes (Death)
  Sender: FDA-Public Use
  Company Number: JP-SANOFI-SYNTHELABO-A01200610185

PATIENT
  Age: 27 Year
  Sex: Male

DRUGS (5)
  1. PAROXETINE HCL [Suspect]
     Indication: INTENTIONAL OVERDOSE
     Route: 048
  2. AMITRIPTYLINE HCL [Suspect]
     Indication: INTENTIONAL OVERDOSE
     Route: 048
  3. ETHYL LOFLAZEPATE [Suspect]
     Indication: INTENTIONAL OVERDOSE
     Route: 048
  4. MYSLEE [Suspect]
     Indication: INTENTIONAL OVERDOSE
     Route: 048
  5. MYSLEE [Suspect]
     Dosage: UNK
     Route: 048

REACTIONS (5)
  - CARDIAC ARREST [None]
  - ELECTROCARDIOGRAM QRS COMPLEX PROLONGED [None]
  - ELECTROMECHANICAL DISSOCIATION [None]
  - MULTIPLE DRUG OVERDOSE INTENTIONAL [None]
  - PYREXIA [None]
